FAERS Safety Report 8220562-6 (Version None)
Quarter: 2012Q1

REPORT INFORMATION
  Report Type: 
  Country: None (occurrence: None)
  Receive Date: 20120320
  Receipt Date: 20120312
  Transmission Date: 20120608
  Serious: Yes (Other)
  Sender: FDA-Public Use
  Company Number: IT-COVIDIEN/TYCO HEALTHCARE/MALLINCKRODT-T201201030

PATIENT
  Age: 56 Year
  Sex: Female
  Weight: 55 kg

DRUGS (7)
  1. TEMAZEPAM [Suspect]
     Indication: PRODUCT USED FOR UNKNOWN INDICATION
     Dosage: 20 MG, QD
  2. ZOLPIDEM [Suspect]
     Dosage: 10 MG, QD
  3. OXCARBAZEPINE [Suspect]
     Indication: CONVULSION PROPHYLAXIS
     Dosage: 600 MG, QD
  4. OXCARBAZEPINE [Suspect]
     Dosage: 300 MG, QD
  5. LORMETAZEPAM [Suspect]
     Dosage: 12.5 MG, QD
  6. FLUMAZENIL [Suspect]
     Indication: DETOXIFICATION
     Dosage: 0.5 MG, QD FOR 14 HOURS DAILY OVER 10 DAYS
     Route: 042
  7. CLONAZEPAM [Suspect]
     Dosage: 12.5 MG, QD

REACTIONS (2)
  - STATUS EPILEPTICUS [None]
  - DRUG DEPENDENCE [None]
